FAERS Safety Report 5567292-7 (Version None)
Quarter: 2007Q4

REPORT INFORMATION
  Report Type: 
  Country: None (occurrence: None)
  Receive Date: 20071219
  Receipt Date: 20070613
  Transmission Date: 20080405
  Serious: No
  Sender: FDA-Public Use
  Company Number: US-ABBOTT-07P-163-0371899-00

PATIENT
  Sex: Male
  Weight: 172.7 kg

DRUGS (2)
  1. DILAUDID [Suspect]
     Indication: PROCEDURAL PAIN
     Dosage: 1-2 MG Q 6H
     Route: 048
     Dates: start: 20070216
  2. GLICLAZIDE [Concomitant]
     Indication: HYPERTENSION
     Route: 048

REACTIONS (1)
  - DRUG INEFFECTIVE [None]
